FAERS Safety Report 7284915-5 (Version None)
Quarter: 2011Q1

REPORT INFORMATION
  Report Type: 
  Country: None (occurrence: None)
  Receive Date: 20110204
  Receipt Date: 20110204
  Transmission Date: 20110831
  Serious: Yes (Other)
  Sender: FDA-Public Use
  Company Number: None

PATIENT
  Age: 16 Year
  Sex: Female
  Weight: 57.5 kg

DRUGS (3)
  1. TRI-SPRINTEC [Suspect]
     Indication: MENORRHAGIA
     Dosage: TRI-SPRINTEC I EACH DAY ORAL
     Route: 048
  2. TRI-SPRINTEC [Suspect]
     Indication: DYSMENORRHOEA
     Dosage: TRI-SPRINTEC I EACH DAY ORAL
     Route: 048
  3. ORTHO TRI-CYCLEN [Suspect]
     Indication: CONTRACEPTION
     Dates: start: 20101101, end: 20110101

REACTIONS (1)
  - FIBROADENOMA OF BREAST [None]
